FAERS Safety Report 14924109 (Version 1)
Quarter: 2018Q2

REPORT INFORMATION
  Report Type: Spontaneous
  Country: US (occurrence: US)
  Receive Date: 20180522
  Receipt Date: 20180522
  Transmission Date: 20180711
  Serious: Yes (Other)
  Sender: FDA-Public Use
  Company Number: US-SEBELA IRELAND LIMITED-2018SEB00130

PATIENT
  Age: 59 Year
  Sex: Male

DRUGS (1)
  1. ITRACONAZOLE. [Suspect]
     Active Substance: ITRACONAZOLE
     Indication: COCCIDIOIDOMYCOSIS
     Dosage: 300 MG, 2X/DAY
     Route: 048

REACTIONS (2)
  - Acquired apparent mineralocorticoid excess [Recovered/Resolved]
  - Hypertension [Recovered/Resolved]
